FAERS Safety Report 9120015 (Version 3)
Quarter: 2013Q1

REPORT INFORMATION
  Report Type: Spontaneous
  Country: DE (occurrence: DE)
  Receive Date: 20130226
  Receipt Date: 20130304
  Transmission Date: 20140127
  Serious: Yes (Death, Other)
  Sender: FDA-Public Use
  Company Number: DE-ASTELLAS-2013US002086

PATIENT
  Age: 62 None
  Sex: Female
  Weight: 73 kg

DRUGS (8)
  1. TARCEVA [Suspect]
     Indication: NON-SMALL CELL LUNG CANCER
     Dosage: 150 MG, UID/QD
     Route: 048
     Dates: start: 20120625, end: 20120917
  2. TARCEVA [Suspect]
     Indication: BRONCHIAL CARCINOMA
  3. PANTAZOL [Concomitant]
     Indication: ABDOMINAL PAIN UPPER
     Dosage: 40 MG, UID/QD
     Route: 048
     Dates: start: 201207
  4. BELOC ZOK [Concomitant]
     Indication: HYPERTENSION
     Dosage: 95 MG, UID/QD
     Route: 048
     Dates: start: 2011
  5. LASIX                              /00032601/ [Concomitant]
     Indication: OEDEMA PERIPHERAL
     Dosage: 1 DF, UID/QD
     Route: 048
     Dates: start: 201207
  6. ATACAND [Concomitant]
     Indication: HYPERTENSION
     Dosage: 8 MG, UID/QD
     Route: 048
     Dates: start: 2011
  7. NOVALGIN                           /00169801/ [Concomitant]
     Indication: PAIN
     Dosage: 40 MG, UID/QD
     Route: 048
     Dates: start: 201207, end: 20120920
  8. PASPERTIN                          /00041902/ [Concomitant]
     Indication: NAUSEA
     Dosage: 120 GTTS, UID/QD
     Route: 048
     Dates: start: 201207, end: 20120920

REACTIONS (7)
  - Embolism [Fatal]
  - Paraneoplastic syndrome [Fatal]
  - Dyspnoea [Fatal]
  - Pneumonitis [Fatal]
  - Acute respiratory failure [Fatal]
  - Malignant neoplasm progression [Fatal]
  - Bronchopneumonia [Fatal]
